FAERS Safety Report 5296192-5 (Version None)
Quarter: 2007Q2

REPORT INFORMATION
  Report Type: 
  Country: None (occurrence: None)
  Receive Date: 20070413
  Receipt Date: 20070404
  Transmission Date: 20071010
  Serious: Yes (Hospitalization)
  Sender: FDA-Public Use
  Company Number: GB-GLAXOSMITHKLINE-B0364293A

PATIENT
  Age: 60 Year
  Sex: Female
  Weight: 74.6 kg

DRUGS (2)
  1. GW572016 [Suspect]
     Indication: BREAST CANCER METASTATIC
     Dosage: 1500MG PER DAY
     Route: 048
     Dates: start: 20041224
  2. LETROZOLE [Suspect]
     Indication: BREAST CANCER METASTATIC
     Dosage: 2.5MG PER DAY
     Route: 048
     Dates: start: 20041224

REACTIONS (6)
  - DRUG TOXICITY [None]
  - DYSPNOEA [None]
  - JOINT SWELLING [None]
  - NAUSEA [None]
  - PLEURITIC PAIN [None]
  - PULMONARY EMBOLISM [None]
